FAERS Safety Report 11438283 (Version 1)
Quarter: 2015Q3

REPORT INFORMATION
  Report Type: Spontaneous
  Country: US (occurrence: US)
  Receive Date: 20150901
  Receipt Date: 20150901
  Transmission Date: 20151125
  Serious: No
  Sender: FDA-Public Use
  Company Number: US-ROCHE-1149413

PATIENT
  Sex: Male

DRUGS (5)
  1. PEGASYS [Suspect]
     Active Substance: PEGINTERFERON ALFA-2A
     Route: 065
  2. PEGASYS [Suspect]
     Active Substance: PEGINTERFERON ALFA-2A
     Indication: HEPATITIS C
     Route: 065
     Dates: start: 20120917
  3. COPEGUS [Suspect]
     Active Substance: RIBAVIRIN
     Indication: HEPATITIS C
     Dosage: DIVIDED DOSES
     Route: 048
     Dates: start: 20120917
  4. COPEGUS [Suspect]
     Active Substance: RIBAVIRIN
     Dosage: DOSE REDUCED.
     Route: 065
  5. BIOTENE DRY MOUTH (UNITED STATES) [Concomitant]

REACTIONS (14)
  - Dyspnoea [Unknown]
  - Nasal dryness [Unknown]
  - Dry skin [Unknown]
  - Anxiety [Unknown]
  - Injection site erythema [Unknown]
  - Weight decreased [Unknown]
  - Full blood count decreased [Unknown]
  - Asthenia [Unknown]
  - Abdominal discomfort [Unknown]
  - Viral load decreased [Unknown]
  - Dry mouth [Unknown]
  - Decreased appetite [Not Recovered/Not Resolved]
  - Nausea [Unknown]
  - Fatigue [Not Recovered/Not Resolved]
